FAERS Safety Report 14881674 (Version 4)
Quarter: 2023Q4

REPORT INFORMATION
  Report Type: Spontaneous
  Country: IT (occurrence: IT)
  Receive Date: 20180511
  Receipt Date: 20231010
  Transmission Date: 20240109
  Serious: Yes (Hospitalization, Other)
  Sender: FDA-Public Use
  Company Number: IT-EMA-DD-20180427-SROYP-142245

PATIENT
  Age: 58 Year
  Sex: Female

DRUGS (11)
  1. ALPRAZOLAM [Interacting]
     Active Substance: ALPRAZOLAM
     Indication: Product used for unknown indication
     Dosage: 1.5 MILLIGRAM, ONCE A DAY
     Route: 048
  2. ALPRAZOLAM [Interacting]
     Active Substance: ALPRAZOLAM
     Dosage: 1 MG
     Route: 065
  3. ALPRAZOLAM [Interacting]
     Active Substance: ALPRAZOLAM
     Dosage: 1.5 MG,UNK
     Route: 065
  4. QUETIAPINE [Suspect]
     Active Substance: QUETIAPINE
     Indication: Product used for unknown indication
     Dosage: 200 MILLIGRAM, ONCE A DAY
     Route: 048
  5. ESCITALOPRAM [Suspect]
     Active Substance: ESCITALOPRAM OXALATE
     Indication: Anxiety
     Dosage: 20 MILLIGRAM, ONCE A DAY
     Route: 048
  6. VENLAFAXINE [Suspect]
     Active Substance: VENLAFAXINE HYDROCHLORIDE
     Indication: Product used for unknown indication
     Dosage: 300 MILLIGRAM, ONCE A DAY
     Route: 048
  7. VALPROIC ACID [Interacting]
     Active Substance: VALPROIC ACID
     Indication: Product used for unknown indication
     Dosage: 300 MILLIGRAM, ONCE A DAY
     Route: 048
  8. VALPROIC ACID [Interacting]
     Active Substance: VALPROIC ACID
     Dosage: 600 UNK
     Route: 065
  9. VALPROIC ACID [Interacting]
     Active Substance: VALPROIC ACID
     Dosage: 300 MG,UNK
     Route: 065
  10. CLONAZEPAM [Interacting]
     Active Substance: CLONAZEPAM
     Indication: Product used for unknown indication
     Dosage: 0.5 MILLIGRAM, ONCE A DAY
     Route: 048
  11. TRAZODONE [Suspect]
     Active Substance: TRAZODONE HYDROCHLORIDE
     Indication: Product used for unknown indication
     Dosage: 75 MILLIGRAM, ONCE A DAY
     Route: 048

REACTIONS (11)
  - Drug interaction [Unknown]
  - Insomnia [Recovered/Resolved]
  - Adjustment disorder with mixed anxiety and depressed mood [Unknown]
  - Anhedonia [Recovered/Resolved]
  - Suicidal ideation [Recovered/Resolved]
  - Treatment noncompliance [Unknown]
  - Drug ineffective [Unknown]
  - Labelled drug-drug interaction medication error [Unknown]
  - Feeling of despair [Recovered/Resolved]
  - Intentional product misuse [Unknown]
  - Medication error [Unknown]
